FAERS Safety Report 6515829 (Version 5)
Quarter: 2013Q1

REPORT INFORMATION
  Report Type: Report from Study
  Country: JP (occurrence: JP)
  Receive Date: 20071228
  Receipt Date: 20130128
  Transmission Date: 20140127
  Serious: Yes (Life-Threatening, Hospitalization)
  Sender: FDA-Public Use
  Company Number: JP-BRISTOL-MYERS SQUIBB COMPANY-13900899

PATIENT
  Age: 60 Year
  Sex: Male

DRUGS (9)
  1. BARACLUDE [Suspect]
     Indication: HEPATITIS B
     Route: 048
     Dates: start: 20070425, end: 20070731
  2. INTRON A [Concomitant]
     Route: 058
     Dates: start: 199101
  3. URSO [Concomitant]
     Route: 048
     Dates: start: 20070326
  4. NU-LOTAN [Concomitant]
     Route: 048
     Dates: start: 20021101
  5. SELBEX [Concomitant]
     Dosage: 1DF: 3CAPS.
     Route: 048
     Dates: start: 20021101, end: 20080426
  6. VITAMEDIN [Concomitant]
     Dosage: 1DF: 3CAPS.
     Route: 048
     Dates: start: 20060301, end: 20070425
  7. LENDORMIN [Concomitant]
     Route: 048
     Dates: start: 20021101
  8. FERON [Concomitant]
     Route: 041
     Dates: start: 199112
  9. AMLODIN [Concomitant]
     Dosage: 1MAY08.
     Route: 048
     Dates: start: 20080501

REACTIONS (1)
  - Hepatic cancer [Recovering/Resolving]
